FAERS Safety Report 4583763-4 (Version None)
Quarter: 2005Q1

REPORT INFORMATION
  Report Type: 
  Country: None (occurrence: None)
  Receive Date: 20050211
  Receipt Date: 20050127
  Transmission Date: 20050727
  Serious: Yes (Hospitalization)
  Sender: FDA-Public Use
  Company Number: 8008849

PATIENT
  Age: 31 Year
  Sex: Female
  Weight: 60 kg

DRUGS (5)
  1. KEPPRA [Suspect]
     Indication: EPILEPSY
     Dates: start: 20041220
  2. RIVOTRIL [Suspect]
     Indication: EPILEPSY
     Dosage: 1 DF 1/D
     Dates: start: 19900101, end: 20050101
  3. FOLIC ACID [Suspect]
     Dates: start: 20040101
  4. TEGRETOL [Suspect]
     Indication: EPILEPSY
     Dosage: 1000 MG/D
     Dates: start: 19900101
  5. DI-HYDAN [Suspect]
     Indication: EPILEPSY
     Dosage: 300 MG /D
     Dates: start: 19900101, end: 20050101

REACTIONS (9)
  - DRUG EXPOSURE DURING PREGNANCY [None]
  - GRAND MAL CONVULSION [None]
  - INDUCED LABOUR [None]
  - PETIT MAL EPILEPSY [None]
  - PREMATURE BABY [None]
  - STATUS EPILEPTICUS [None]
  - STILLBIRTH [None]
  - TREATMENT NONCOMPLIANCE [None]
  - ULTRASOUND ANTENATAL SCREEN ABNORMAL [None]
